FAERS Safety Report 6664219-1 (Version None)
Quarter: 2010Q2

REPORT INFORMATION
  Report Type: 
  Country: None (occurrence: None)
  Receive Date: 20100401
  Receipt Date: 20100326
  Transmission Date: 20101027
  Serious: Yes (Other)
  Sender: FDA-Public Use
  Company Number: CHPA2010DE05830

PATIENT
  Sex: Male

DRUGS (1)
  1. OTRIVEN (NCH) [Suspect]
     Dosage: UNK, UNK
     Route: 045

REACTIONS (3)
  - ANXIETY [None]
  - DRUG DEPENDENCE [None]
  - NASAL CONGESTION [None]
